FAERS Safety Report 15967023 (Version 3)
Quarter: 2019Q1

REPORT INFORMATION
  Report Type: Spontaneous
  Country: JP (occurrence: JP)
  Receive Date: 20190215
  Receipt Date: 20190225
  Transmission Date: 20190418
  Serious: Yes (Life-Threatening, Other)
  Sender: FDA-Public Use
  Company Number: JP-SA-2019SA042429

PATIENT
  Age: 57 Year
  Sex: Female

DRUGS (5)
  1. XYZAL [Suspect]
     Active Substance: LEVOCETIRIZINE DIHYDROCHLORIDE
     Indication: PRURITUS
     Dosage: 5 MG, QD
     Route: 048
     Dates: start: 20181018, end: 20181106
  2. ALLELOCK [Concomitant]
     Active Substance: OLOPATADINE HYDROCHLORIDE
     Dosage: UNK, UNK
     Route: 065
  3. SALEX [BETAMETHASONE BUTYRATE PROPIONATE] [Concomitant]
     Indication: PRURITUS
     Dosage: UNK, UNK
     Route: 065
     Dates: start: 20181018
  4. HEPARINOID [Concomitant]
     Active Substance: CHONDROITIN SULFATE (BOVINE)
     Indication: PRURITUS
     Dosage: UNK, UNK
     Route: 065
     Dates: start: 20181018
  5. OMEPRAL [OMEPRAZOLE] [Concomitant]
     Dosage: UNK, UNK
     Route: 065
     Dates: start: 200205

REACTIONS (3)
  - Haemorrhage subcutaneous [Recovered/Resolved]
  - Platelet count decreased [Recovered/Resolved]
  - Haemorrhagic diathesis [Recovered/Resolved]

NARRATIVE: CASE EVENT DATE: 20181106
